FAERS Safety Report 8995927 (Version 1)
Quarter: 2013Q1

REPORT INFORMATION
  Report Type: Spontaneous
  Country: US (occurrence: US)
  Receive Date: 20130103
  Receipt Date: 20130103
  Transmission Date: 20140127
  Serious: Yes (Other)
  Sender: FDA-Public Use
  Company Number: US-BAYER-2012-136578

PATIENT
  Age: 41 Year
  Sex: Male
  Weight: 90.7 kg

DRUGS (3)
  1. ALEVE CAPLET/TABLET,MIDOL EXTENDED RELIEF CAPLET [Suspect]
     Indication: ANALGESIC THERAPY
     Route: 048
  2. ALEVE CAPLET/TABLET,MIDOL EXTENDED RELIEF CAPLET [Suspect]
     Indication: NECK PAIN
     Dosage: 20 DF, UNK
  3. ALEVE CAPLET/TABLET,MIDOL EXTENDED RELIEF CAPLET [Suspect]
     Indication: PAIN IN EXTREMITY

REACTIONS (3)
  - Intentional overdose [None]
  - Drug ineffective [None]
  - Abdominal pain [Recovered/Resolved]
